FAERS Safety Report 7282584-1 (Version None)
Quarter: 2011Q1

REPORT INFORMATION
  Report Type: 
  Country: None (occurrence: None)
  Receive Date: 20110209
  Receipt Date: 20110204
  Transmission Date: 20110831
  Serious: No
  Sender: FDA-Public Use
  Company Number: US-PFIZER INC-2011025987

PATIENT

DRUGS (2)
  1. IBUPROFEN [Suspect]
  2. CELEBREX [Suspect]
     Dosage: 200 MG, 2X/DAY

REACTIONS (1)
  - RASH [None]
